FAERS Safety Report 5044623-8 (Version None)
Quarter: 2006Q2

REPORT INFORMATION
  Report Type: 
  Country: None (occurrence: None)
  Receive Date: 20060629
  Receipt Date: 20060619
  Transmission Date: 20061013
  Serious: Yes (Other)
  Sender: FDA-Public Use
  Company Number: L06-ITA-02573-04

PATIENT
  Age: 6 Year
  Sex: Female

DRUGS (4)
  1. CARBAMAZEPINE [Suspect]
     Indication: PARTIAL SEIZURES
  2. CARBAMAZEPINE [Suspect]
     Indication: PETIT MAL EPILEPSY
  3. VALPROIC ACID [Concomitant]
  4. ETHOSUXIMIDE [Concomitant]

REACTIONS (4)
  - ATONIC SEIZURES [None]
  - CONDITION AGGRAVATED [None]
  - MILD MENTAL RETARDATION [None]
  - PETIT MAL EPILEPSY [None]
